FAERS Safety Report 7883679-1 (Version None)
Quarter: 2011Q4

REPORT INFORMATION
  Report Type: 
  Country: None (occurrence: None)
  Receive Date: 20111102
  Receipt Date: 20111028
  Transmission Date: 20120403
  Serious: Yes (Other)
  Sender: FDA-Public Use
  Company Number: US-PFIZER INC-2011264684

PATIENT

DRUGS (1)
  1. SULFASALAZINE [Suspect]
     Dosage: 500 MG, UNK

REACTIONS (1)
  - COELIAC DISEASE [None]
